FAERS Safety Report 6037769-9 (Version None)
Quarter: 2009Q1

REPORT INFORMATION
  Report Type: 
  Country: None (occurrence: None)
  Receive Date: 20090113
  Receipt Date: 20081231
  Transmission Date: 20090719
  Serious: Yes (Death)
  Sender: FDA-Public Use
  Company Number: 2009S1000256

PATIENT
  Age: 49 Year
  Sex: Male

DRUGS (2)
  1. IBUPROFEN TABLETS [Suspect]
  2. DIVALPROEX SODIUM [Suspect]

REACTIONS (4)
  - HAEMODIALYSIS [None]
  - HYPOTENSION [None]
  - METABOLIC ACIDOSIS [None]
  - UNRESPONSIVE TO STIMULI [None]
